FAERS Safety Report 8965436 (Version 2)
Quarter: 2013Q1

REPORT INFORMATION
  Report Type: Report from Study
  Country: US (occurrence: NL)
  Receive Date: 20121213
  Receipt Date: 20130108
  Transmission Date: 20140127
  Serious: Yes (Hospitalization)
  Sender: FDA-Public Use
  Company Number: NL-PFIZER INC-2012309989

PATIENT
  Age: 66 Year
  Sex: Male
  Weight: 88 kg

DRUGS (7)
  1. GENOTROPIN [Suspect]
     Dosage: 0.3 MG, 1X/DAY, 7 INJECTIONS/WEEK
     Route: 058
     Dates: start: 20020220
  2. HYDROCORTISONE [Concomitant]
     Indication: BLOOD CORTICOTROPHIN DECREASED
     Dosage: UNK
     Dates: start: 19850701
  3. TESTOSTERONE [Concomitant]
     Indication: LUTEINISING HORMONE DEFICIENCY
     Dosage: UNK
     Dates: start: 19850701
  4. TESTOSTERONE [Concomitant]
     Indication: FOLLICLE-STIMULATING HORMONE DEFICIENCY
  5. TESTOSTERONE [Concomitant]
     Indication: HYPOGONADISM MALE
  6. LEVOTHYROXINE [Concomitant]
     Indication: THYROID DISORDER
     Dosage: UNK
     Dates: start: 19850701
  7. LEVOTHYROXINE [Concomitant]
     Indication: PRIMARY HYPOTHYROIDISM

REACTIONS (2)
  - Pain in extremity [Unknown]
  - Accident [Unknown]
